FAERS Safety Report 5285737-7 (Version None)
Quarter: 2007Q1

REPORT INFORMATION
  Report Type: 
  Country: None (occurrence: None)
  Receive Date: 20070130
  Receipt Date: 20060712
  Transmission Date: 20070707
  Serious: Yes (Other)
  Sender: FDA-Public Use
  Company Number: 2006RL000251

PATIENT
  Age: 78 Year
  Sex: Male

DRUGS (4)
  1. PROPAFENONE HCL [Suspect]
     Indication: VENTRICULAR FIBRILLATION
     Dosage: 600 MG;QD;PO
     Route: 048
  2. CAPTOPRIL [Concomitant]
  3. FUROSEMIDE [Concomitant]
  4. TRIFLUSAL [Concomitant]

REACTIONS (2)
  - DRUG INEFFECTIVE [None]
  - VENTRICULAR TACHYCARDIA [None]
